FAERS Safety Report 26031887 (Version 3)
Quarter: 2025Q4

REPORT INFORMATION
  Report Type: Report from Study
  Country: EU (occurrence: EU)
  Receive Date: 20251112
  Receipt Date: 20251214
  Transmission Date: 20260118
  Serious: Yes (Death, Disabling, Other)
  Sender: ABBVIE
  Company Number: EU-ABBVIE-6539097

PATIENT
  Age: 76 Year
  Sex: Female

DRUGS (1)
  1. FOSCARBIDOPA\FOSLEVODOPA [Suspect]
     Active Substance: FOSCARBIDOPA\FOSLEVODOPA
     Indication: Parkinson^s disease
     Dosage: DAILY DOSE: 1.809,6 MG/DAY CRL: 0.22ML/H  CRB: 0.33ML/H CRH: 0.35ML/H ?ED: 0.25ML LD: 1.1ML
     Route: 058
     Dates: start: 20241021

REACTIONS (3)
  - General physical health deterioration [Fatal]
  - Cerebrovascular accident [Not Recovered/Not Resolved]
  - Depressed level of consciousness [Not Recovered/Not Resolved]

NARRATIVE: CASE EVENT DATE: 20251101
